FAERS Safety Report 13540427 (Version 1)
Quarter: 2017Q2

REPORT INFORMATION
  Report Type: Spontaneous
  Country: BR (occurrence: BR)
  Receive Date: 20170512
  Receipt Date: 20170512
  Transmission Date: 20170830
  Serious: Yes (Other)
  Sender: FDA-Public Use
  Company Number: BR-AMGEN-BRASP2017020246

PATIENT
  Age: 48 Year
  Sex: Female

DRUGS (1)
  1. ENBREL [Suspect]
     Active Substance: ETANERCEPT
     Indication: RHEUMATOID ARTHRITIS
     Dosage: 50 MG, ONCE WEEKLY
     Route: 065
     Dates: start: 201702, end: 201704

REACTIONS (7)
  - Alopecia [Not Recovered/Not Resolved]
  - Malaise [Recovering/Resolving]
  - Proctalgia [Recovering/Resolving]
  - Gastrointestinal infection [Recovering/Resolving]
  - Hunger [Recovering/Resolving]
  - Dysentery [Recovering/Resolving]
  - Weight increased [Recovering/Resolving]

NARRATIVE: CASE EVENT DATE: 2017
